FAERS Safety Report 7798877-5 (Version None)
Quarter: 2011Q4

REPORT INFORMATION
  Report Type: 
  Country: None (occurrence: None)
  Receive Date: 20111006
  Receipt Date: 20110916
  Transmission Date: 20120403
  Serious: Yes (Hospitalization, Other)
  Sender: FDA-Public Use
  Company Number: US-BAYER-2011-070566

PATIENT
  Age: 75 Year
  Sex: Female

DRUGS (5)
  1. SORAFENIB (RAF KINASE INHIBITOR) [Suspect]
     Dosage: 400 MG, BID
     Dates: start: 20110916
  2. SORAFENIB (RAF KINASE INHIBITOR) [Suspect]
     Dosage: 400 MG, BID
     Dates: start: 20110101, end: 20110801
  3. ANTIHYPERTENSIVES [Concomitant]
     Indication: HYPERTENSION
     Route: 048
  4. SORAFENIB (RAF KINASE INHIBITOR) [Suspect]
     Indication: HEPATIC NEOPLASM MALIGNANT
     Dosage: 400 MG, BID
     Dates: start: 20110720, end: 20110101
  5. XANAX [Concomitant]
     Dosage: UNK UNK, TID

REACTIONS (11)
  - DIARRHOEA [None]
  - ORAL FUNGAL INFECTION [None]
  - DYSPHONIA [None]
  - PAIN OF SKIN [None]
  - CONFUSIONAL STATE [None]
  - ATRIAL FIBRILLATION [None]
  - FATIGUE [None]
  - BLOOD PRESSURE INCREASED [None]
  - NAUSEA [None]
  - SKIN DISCOLOURATION [None]
  - PRURITUS [None]
